FAERS Safety Report 18692616 (Version 2)
Quarter: 2023Q4

REPORT INFORMATION
  Report Type: Other
  Country: PR (occurrence: None)
  Receive Date: 20210103
  Receipt Date: 20231127
  Transmission Date: 20240110
  Serious: Yes (Hospitalization)
  Sender: FDA-Public Use
  Company Number: PR-SAPTALIS PHARMACEUTICALS,LLC-000012

PATIENT
  Age: 45 Year
  Sex: Female

DRUGS (5)
  1. ACETIC ACID [Suspect]
     Active Substance: ACETIC ACID
     Indication: Otitis externa
     Route: 001
  2. HYDROCORTISONE [Suspect]
     Active Substance: HYDROCORTISONE
     Indication: Otitis externa
     Route: 001
  3. HYDROCORTISONE\NEOMYCIN\POLYMYXIN B [Suspect]
     Active Substance: HYDROCORTISONE\NEOMYCIN\POLYMYXIN B
     Indication: Otitis externa
     Dosage: 4 TIMES PER DAY
     Route: 001
  4. ACETIC ACID [Suspect]
     Active Substance: ACETIC ACID
     Indication: Otitis externa
     Dosage: 4 TIMES PER DAY
     Route: 001
  5. HYDROCORTISONE [Suspect]
     Active Substance: HYDROCORTISONE
     Indication: Otitis externa
     Dosage: 4 TIMES PER DAY
     Route: 001

REACTIONS (1)
  - Dermatitis contact [Recovered/Resolved]
